FAERS Safety Report 4899324-3 (Version None)
Quarter: 2006Q1

REPORT INFORMATION
  Report Type: 
  Country: None (occurrence: None)
  Receive Date: 20060131
  Receipt Date: 20060124
  Transmission Date: 20060701
  Serious: Yes (Death, Life-Threatening)
  Sender: FDA-Public Use
  Company Number: 2006008414

PATIENT
  Age: 16 Year
  Sex: Male

DRUGS (6)
  1. LYRICA [Suspect]
     Indication: EPILEPSY
     Dosage: 150 MG 75 MG, 2 IN 1 DAY), ORAL
     Route: 048
     Dates: start: 20050407, end: 20050101
  2. NEUROTOL - SLOW RELEASE (CARBAMAZEPINE) [Concomitant]
  3. ABSENOR (VALPROIC ACID) [Concomitant]
  4. ALL OTHER THERAPEUTIC PRODUCTS (ALL OTHER THERAPEUTIC PRODUCTS) [Concomitant]
  5. DIAZEPAM [Concomitant]
  6. NAPROMETIN (NAPROXEN) [Concomitant]

REACTIONS (6)
  - BODY TEMPERATURE INCREASED [None]
  - CONDITION AGGRAVATED [None]
  - EPILEPSY [None]
  - PHARYNGEAL ERYTHEMA [None]
  - SUDDEN DEATH [None]
  - VOMITING [None]
